FAERS Safety Report 5650473-1 (Version None)
Quarter: 2008Q1

REPORT INFORMATION
  Report Type: 
  Country: None (occurrence: None)
  Receive Date: 20080304
  Receipt Date: 20080304
  Transmission Date: 20080703
  Serious: Yes (Hospitalization)
  Sender: FDA-Public Use
  Company Number: None

PATIENT
  Sex: Female
  Weight: 92 kg

DRUGS (9)
  1. TEMOZOLOMIDE [Suspect]
     Indication: GLIOBLASTOMA MULTIFORME
     Dosage: 150MG/M2 X 5 DAYS
     Dates: start: 20080204, end: 20080208
  2. SCH66336 250MG BID - SCHERING PLOUGH [Suspect]
     Indication: GLIOBLASTOMA MULTIFORME
     Dosage: 250MG BID X 26 DAYS
     Dates: start: 20080204, end: 20080211
  3. TEMODAR [Concomitant]
  4. KEPPRA [Concomitant]
  5. DIOVAN [Concomitant]
  6. LOTREL [Concomitant]
  7. LEVOXYL [Concomitant]
  8. LIPITOR [Concomitant]
  9. BONIVA [Concomitant]

REACTIONS (1)
  - RENAL FAILURE [None]
